FAERS Safety Report 11021244 (Version 1)
Quarter: 2015Q2

REPORT INFORMATION
  Report Type: Report from Study
  Country: DE (occurrence: DE)
  Receive Date: 20150413
  Receipt Date: 20150413
  Transmission Date: 20150821
  Serious: Yes (Hospitalization)
  Sender: FDA-Public Use
  Company Number: DE-SA-2015SA045687

PATIENT
  Age: 74 Year
  Sex: Male
  Weight: 90.1 kg

DRUGS (4)
  1. JEVTANA [Suspect]
     Active Substance: CABAZITAXEL
     Indication: PROSTATE CANCER METASTATIC
     Route: 042
     Dates: start: 20150210, end: 20150210
  2. JEVTANA [Suspect]
     Active Substance: CABAZITAXEL
     Indication: PROSTATE CANCER METASTATIC
     Route: 042
     Dates: start: 20141021, end: 20141021
  3. TRENANTONE [Concomitant]
     Active Substance: LEUPROLIDE ACETATE
     Dates: start: 20120530
  4. XGEVA [Concomitant]
     Active Substance: DENOSUMAB
     Dates: start: 20130809

REACTIONS (1)
  - VIIth nerve paralysis [Recovering/Resolving]

NARRATIVE: CASE EVENT DATE: 20150216
